FAERS Safety Report 18051654 (Version 3)
Quarter: 2021Q1

REPORT INFORMATION
  Report Type: Spontaneous
  Country: CA (occurrence: CA)
  Receive Date: 20200721
  Receipt Date: 20210201
  Transmission Date: 20210419
  Serious: Yes (Hospitalization, Other)
  Sender: FDA-Public Use
  Company Number: CA-BAUSCH-BL-2020-020855

PATIENT
  Age: 74 Year
  Sex: Male

DRUGS (28)
  1. SALBUTAMOL SULFATE [Suspect]
     Active Substance: ALBUTEROL SULFATE
     Indication: PRODUCT USED FOR UNKNOWN INDICATION
     Dosage: HFA METERED DOSE INHALER DEVICE
     Route: 065
  2. WELLBUTRIN XL [Suspect]
     Active Substance: BUPROPION HYDROCHLORIDE
     Indication: PRODUCT USED FOR UNKNOWN INDICATION
     Route: 065
  3. NUCALA [Suspect]
     Active Substance: MEPOLIZUMAB
     Indication: ASTHMA
     Dates: start: 20170406
  4. VENTOLIN HFA [Suspect]
     Active Substance: ALBUTEROL SULFATE
     Indication: PRODUCT USED FOR UNKNOWN INDICATION
     Route: 065
  5. SPORANOX [Suspect]
     Active Substance: ITRACONAZOLE
     Indication: ASTHMA
     Route: 065
  6. NUCALA [Suspect]
     Active Substance: MEPOLIZUMAB
  7. PREDNISONE. [Suspect]
     Active Substance: PREDNISONE
     Route: 065
  8. PREDNISONE. [Suspect]
     Active Substance: PREDNISONE
     Route: 065
  9. PREDNISONE. [Suspect]
     Active Substance: PREDNISONE
     Route: 065
  10. PREDNISONE. [Suspect]
     Active Substance: PREDNISONE
     Route: 065
  11. SYMBICORT [Suspect]
     Active Substance: BUDESONIDE\FORMOTEROL FUMARATE DIHYDRATE
     Indication: ASTHMA
     Dosage: 200/6 MCG, 2 PUFF
     Route: 065
  12. FLUTICASONE FUROATE [Suspect]
     Active Substance: FLUTICASONE FUROATE
     Indication: PRODUCT USED FOR UNKNOWN INDICATION
     Dosage: NASAL APPLICATOR
     Route: 065
  13. DEXILANT [Suspect]
     Active Substance: DEXLANSOPRAZOLE
     Indication: PRODUCT USED FOR UNKNOWN INDICATION
     Route: 065
  14. XOLAIR [Suspect]
     Active Substance: OMALIZUMAB
     Indication: PRODUCT USED FOR UNKNOWN INDICATION
     Route: 065
  15. PREDNISONE. [Suspect]
     Active Substance: PREDNISONE
     Indication: PRODUCT USED FOR UNKNOWN INDICATION
     Route: 065
  16. PREDNISONE. [Suspect]
     Active Substance: PREDNISONE
     Route: 065
  17. SYMBICORT [Suspect]
     Active Substance: BUDESONIDE\FORMOTEROL FUMARATE DIHYDRATE
     Indication: PRODUCT USED FOR UNKNOWN INDICATION
  18. AVAMYS [Suspect]
     Active Substance: FLUTICASONE FUROATE
     Indication: PRODUCT USED FOR UNKNOWN INDICATION
     Route: 065
  19. HYTRIN [Suspect]
     Active Substance: TERAZOSIN HYDROCHLORIDE
     Indication: PRODUCT USED FOR UNKNOWN INDICATION
     Route: 048
  20. PREDNISONE. [Suspect]
     Active Substance: PREDNISONE
     Route: 065
  21. PREDNISONE. [Suspect]
     Active Substance: PREDNISONE
     Route: 065
  22. PAXIL [Suspect]
     Active Substance: PAROXETINE HYDROCHLORIDE
     Indication: PRODUCT USED FOR UNKNOWN INDICATION
     Route: 065
  23. PREVACID [Suspect]
     Active Substance: LANSOPRAZOLE
     Indication: PRODUCT USED FOR UNKNOWN INDICATION
     Route: 065
  24. PREDNISONE. [Suspect]
     Active Substance: PREDNISONE
     Route: 065
  25. ITRACONAZOLE. [Suspect]
     Active Substance: ITRACONAZOLE
     Indication: PRODUCT USED FOR UNKNOWN INDICATION
     Route: 065
  26. NUCALA [Suspect]
     Active Substance: MEPOLIZUMAB
     Dates: start: 20210104
  27. VENTOLIN [Suspect]
     Active Substance: ALBUTEROL SULFATE
     Indication: ASTHMA
     Dosage: 1 TO 2 PUFF AS NEEDED
     Route: 065
  28. PULMICORT TURBUHALER [Suspect]
     Active Substance: BUDESONIDE
     Indication: PRODUCT USED FOR UNKNOWN INDICATION
     Route: 065

REACTIONS (14)
  - Blood count abnormal [Unknown]
  - Fatigue [Unknown]
  - Dyspnoea [Unknown]
  - Rhinorrhoea [Unknown]
  - Cough [Unknown]
  - Therapeutic product effect incomplete [Unknown]
  - Bronchiectasis [Unknown]
  - Lung opacity [Unknown]
  - Asthma [Unknown]
  - Sputum discoloured [Unknown]
  - Chest pain [Unknown]
  - Alanine aminotransferase abnormal [Unknown]
  - Blood alkaline phosphatase abnormal [Unknown]
  - Hospitalisation [Unknown]
